FAERS Safety Report 4543926-0 (Version None)
Quarter: 2005Q1

REPORT INFORMATION
  Report Type: 
  Country: None (occurrence: None)
  Receive Date: 20050103
  Receipt Date: 20031027
  Transmission Date: 20050727
  Serious: Yes (Other)
  Sender: FDA-Public Use
  Company Number: GXKR2003GB00478

PATIENT
  Age: 67 Year
  Sex: Male
  Weight: 83 kg

DRUGS (4)
  1. FUROSEMIDE (NGX) [Suspect]
     Dosage: 20 MG/DAY, ORAL
     Route: 048
     Dates: start: 20030808, end: 20030812
  2. QUININE SULFATE [Suspect]
     Indication: MUSCLE SPASMS
     Dosage: 300 MG/ DAY, ORAL
     Route: 048
     Dates: start: 20030806, end: 20030812
  3. SPIRONOLACTONE [Suspect]
     Indication: MUSCLE SPASMS
     Dosage: 400 MG/DAY, ORAL
     Route: 048
     Dates: start: 20030724, end: 20030812
  4. CAMPRAL [Suspect]
     Dosage: 1998 MG, ORAL
     Route: 048
     Dates: start: 20030807, end: 20030812

REACTIONS (2)
  - FEBRILE NEUTROPENIA [None]
  - WHITE BLOOD CELL COUNT DECREASED [None]
